FAERS Safety Report 4340681-4 (Version None)
Quarter: 2004Q2

REPORT INFORMATION
  Report Type: 
  Country: None (occurrence: None)
  Receive Date: 20040413
  Receipt Date: 20040331
  Transmission Date: 20050107
  Serious: Yes (Hospitalization)
  Sender: FDA-Public Use
  Company Number: 137491USA

PATIENT
  Age: 53 Year
  Sex: Female
  Weight: 55.7924 kg

DRUGS (2)
  1. MINOCYCLINE HCL [Suspect]
     Indication: ROSACEA
     Dosage: 50 MILLIGRAM QD ORAL
     Route: 048
     Dates: start: 20030501, end: 20030626
  2. HORMONES [Concomitant]

REACTIONS (23)
  - ALOPECIA [None]
  - AUTOIMMUNE DISORDER [None]
  - BLOOD ALKALINE PHOSPHATASE INCREASED [None]
  - BLOOD DISORDER [None]
  - BODY TEMPERATURE INCREASED [None]
  - CHROMATURIA [None]
  - DIABETES MELLITUS INSULIN-DEPENDENT [None]
  - DRUG HYPERSENSITIVITY [None]
  - DYSARTHRIA [None]
  - FEELING ABNORMAL [None]
  - HEADACHE [None]
  - HEPATIC ENZYME INCREASED [None]
  - HYPERHIDROSIS [None]
  - HYPOAESTHESIA [None]
  - LYMPHADENOPATHY [None]
  - PAIN [None]
  - PHARMACEUTICAL PRODUCT COMPLAINT [None]
  - PHOTOSENSITIVITY REACTION [None]
  - RHINORRHOEA [None]
  - STEVENS-JOHNSON SYNDROME [None]
  - SUNBURN [None]
  - TACHYCARDIA [None]
  - TOOTH DISORDER [None]
